FAERS Safety Report 8258303-9 (Version None)
Quarter: 2012Q2

REPORT INFORMATION
  Report Type: 
  Country: None (occurrence: None)
  Receive Date: 20120404
  Receipt Date: 20120323
  Transmission Date: 20120825
  Serious: Yes (Hospitalization)
  Sender: FDA-Public Use
  Company Number: JP-UCBSA-052980

PATIENT
  Age: 14 Year
  Sex: Female
  Weight: 17 kg

DRUGS (6)
  1. ZONISAMIDE [Concomitant]
     Indication: EPILEPSY
     Dosage: DAILY DOSE: 200 MG
     Route: 048
     Dates: start: 20040101
  2. KEPPRA [Suspect]
     Indication: GRAND MAL CONVULSION
     Route: 048
     Dates: start: 20120227, end: 20120302
  3. LAMICTAL [Concomitant]
     Indication: EPILEPSY
     Dosage: DAILY DOSE: 16 MG
     Route: 048
     Dates: start: 20090101
  4. OSPOLOT [Concomitant]
     Indication: EPILEPSY
     Dosage: DAILY DOSE: 180 MG
     Route: 048
     Dates: start: 20051028
  5. KEPPRA [Suspect]
     Indication: EPILEPSY
     Route: 048
     Dates: start: 20120227, end: 20120302
  6. DEPAKENE [Concomitant]
     Indication: EPILEPSY
     Dosage: DAILY DOSE: 10 ML
     Route: 048
     Dates: start: 19980501

REACTIONS (1)
  - SEIZURE CLUSTER [None]
